FAERS Safety Report 12540204 (Version 4)
Quarter: 2020Q1

REPORT INFORMATION
  Report Type: Report from Study
  Country: AR (occurrence: AR)
  Receive Date: 20160708
  Receipt Date: 20200327
  Transmission Date: 20200409
  Serious: Yes (Other)
  Sender: FDA-Public Use
  Company Number: PHHY2016AR091995

PATIENT
  Age: 87 Year
  Sex: Male

DRUGS (5)
  1. DIOVAN D [Suspect]
     Active Substance: HYDROCHLOROTHIAZIDE\VALSARTAN
     Indication: HYPERTENSION
     Dosage: 1 DF, QD (25 MG HYDROCHLOROTHIAZIDE AND 320 MG VALSARTAN)
     Route: 065
     Dates: start: 2013, end: 202002
  2. DIOVAN D [Suspect]
     Active Substance: HYDROCHLOROTHIAZIDE\VALSARTAN
     Dosage: 1 DF, QD (160/ 12.5 )
     Route: 065
     Dates: start: 202002
  3. EXFORGE [Suspect]
     Active Substance: AMLODIPINE BESYLATE\VALSARTAN
     Indication: CARDIAC DISORDER
  4. EXFORGE [Suspect]
     Active Substance: AMLODIPINE BESYLATE\VALSARTAN
     Indication: BLOOD PRESSURE ABNORMAL
     Dosage: 1 DF, QD
     Route: 065
  5. CARVEDILOL. [Concomitant]
     Active Substance: CARVEDILOL
     Indication: ARRHYTHMIA
     Dosage: 6.26 MG, UNKNOWN
     Route: 065

REACTIONS (7)
  - Blood urea increased [Unknown]
  - Wrong technique in product usage process [Unknown]
  - Bradycardia [Unknown]
  - Chronic lymphocytic leukaemia [Recovering/Resolving]
  - White blood cell count decreased [Unknown]
  - Blood creatinine increased [Unknown]
  - Product dispensing error [Unknown]

NARRATIVE: CASE EVENT DATE: 202002
